FAERS Safety Report 19550708 (Version 1)
Quarter: 2021Q3

REPORT INFORMATION
  Report Type: Spontaneous
  Country: US (occurrence: US)
  Receive Date: 20210714
  Receipt Date: 20210714
  Transmission Date: 20211014
  Serious: No
  Sender: FDA-Public Use
  Company Number: US-BLUEPRINT MEDICINES CORPORATION-SP-US-2021-001037

PATIENT
  Sex: Female

DRUGS (1)
  1. AYVAKIT [Suspect]
     Active Substance: AVAPRITINIB
     Indication: SYSTEMIC MASTOCYTOSIS
     Route: 048

REACTIONS (7)
  - Visual impairment [Unknown]
  - Abdominal pain upper [Unknown]
  - Off label use [Unknown]
  - Bone pain [Unknown]
  - Diarrhoea [Unknown]
  - Vertigo [Unknown]
  - Hair colour changes [Unknown]
